FAERS Safety Report 23709244 (Version 1)
Quarter: 2024Q2

REPORT INFORMATION
  Report Type: Spontaneous
  Country: CN (occurrence: CN)
  Receive Date: 20240404
  Receipt Date: 20240404
  Transmission Date: 20240716
  Serious: Yes (Hospitalization, Other)
  Sender: FDA-Public Use
  Company Number: CN-ELI_LILLY_AND_COMPANY-CN202403016098

PATIENT
  Age: 78 Year
  Sex: Female
  Weight: 70 kg

DRUGS (4)
  1. DULAGLUTIDE [Suspect]
     Active Substance: DULAGLUTIDE
     Indication: Diabetes mellitus
     Dosage: 1.5 MG, WEEKLY (1/W)
     Route: 058
     Dates: start: 20230710, end: 20240324
  2. INSULIN GLARGINE [Concomitant]
     Active Substance: INSULIN GLARGINE
     Indication: Diabetes mellitus
     Dosage: 20 U, DAILY
     Route: 058
     Dates: start: 20230710, end: 20240324
  3. METFORMIN HYDROCHLORIDE [Concomitant]
     Active Substance: METFORMIN HYDROCHLORIDE
     Indication: Diabetes mellitus
     Dosage: 0.5 G, BID
     Route: 048
     Dates: start: 20230710, end: 20240324
  4. METOPROLOL [Concomitant]
     Active Substance: METOPROLOL
     Indication: Product used for unknown indication
     Dosage: 23.75 MG, DAILY
     Route: 065
     Dates: start: 20230612

REACTIONS (5)
  - Atrial fibrillation [Recovering/Resolving]
  - Cardiac failure [Recovering/Resolving]
  - Pneumonia [Recovering/Resolving]
  - Productive cough [Recovering/Resolving]
  - Dyspnoea [Recovering/Resolving]

NARRATIVE: CASE EVENT DATE: 20240201
